FAERS Safety Report 13456513 (Version 1)
Quarter: 2017Q2

REPORT INFORMATION
  Report Type: Not Available
  Country: None (occurrence: US)
  Receive Date: 20170418
  Receipt Date: 20170418
  Transmission Date: 20170830
  Serious: No
  Sender: FDA-Public Use
  Company Number: US-AKORN-54442

PATIENT
  Age: 65 Year
  Sex: Female

DRUGS (1)
  1. BRIMONIDINE TARTRATE 0.2 % OPHTHALMIC SOLUTION [Suspect]
     Active Substance: BRIMONIDINE TARTRATE

REACTIONS (1)
  - Ocular hyperaemia [None]
